FAERS Safety Report 11496888 (Version 3)
Quarter: 2015Q3

REPORT INFORMATION
  Report Type: Spontaneous
  Country: US (occurrence: US)
  Receive Date: 20150911
  Receipt Date: 20150918
  Transmission Date: 20151125
  Serious: Yes (Other)
  Sender: FDA-Public Use
  Company Number: US-SA-2015SA137085

PATIENT
  Age: 69 Year
  Sex: Female

DRUGS (1)
  1. ICY HOT MEDICATED, BACK [Suspect]
     Active Substance: MENTHOL
     Dosage: USED 1 PATCH
     Route: 065
     Dates: start: 20150901, end: 20150901

REACTIONS (3)
  - Skin discolouration [Unknown]
  - Burning sensation [Unknown]
  - Burns second degree [Unknown]

NARRATIVE: CASE EVENT DATE: 20150901
